FAERS Safety Report 4342268-6 (Version None)
Quarter: 2004Q2

REPORT INFORMATION
  Report Type: 
  Country: None (occurrence: None)
  Receive Date: 20040415
  Receipt Date: 20040406
  Transmission Date: 20050107
  Serious: Yes (Disabling)
  Sender: FDA-Public Use
  Company Number: 2004UW02498

PATIENT
  Age: 34 Year
  Sex: Male
  Weight: 83.9154 kg

DRUGS (34)
  1. SEROQUEL [Suspect]
     Indication: BIPOLAR DISORDER
     Dosage: 25 MG DAILY PO
     Route: 048
     Dates: start: 19990505
  2. SEROQUEL [Suspect]
     Indication: BIPOLAR DISORDER
     Dosage: 50 MG DAILY PO
     Route: 048
     Dates: start: 19990511
  3. SEROQUEL [Suspect]
     Indication: BIPOLAR DISORDER
     Dosage: 75 MG DAILY PO
     Route: 048
     Dates: start: 19990514
  4. SEROQUEL [Suspect]
     Indication: BIPOLAR DISORDER
     Dosage: 100 MG DAILY PO
     Route: 048
     Dates: start: 19990602
  5. SEROQUEL [Suspect]
     Indication: BIPOLAR DISORDER
     Dosage: 150 MG DAILY PO
     Route: 048
     Dates: start: 19990908
  6. SEROQUEL [Suspect]
     Indication: BIPOLAR DISORDER
     Dosage: 200 MG DAILY PO
     Route: 048
     Dates: start: 19990910
  7. SEROQUEL [Suspect]
     Indication: BIPOLAR DISORDER
     Dosage: 300 MG DAILY PO
     Route: 048
     Dates: start: 19991005
  8. SEROQUEL [Suspect]
     Indication: BIPOLAR DISORDER
     Dosage: 400 MG DAILY PO
     Route: 048
     Dates: start: 19991013
  9. SEROQUEL [Suspect]
     Indication: BIPOLAR DISORDER
     Dosage: 500 MG DAILY PO
     Route: 048
     Dates: start: 19991021
  10. SEROQUEL [Suspect]
     Indication: BIPOLAR DISORDER
     Dosage: 600 MG DAILY PO
     Route: 048
     Dates: start: 20000316
  11. SEROQUEL [Suspect]
     Indication: BIPOLAR DISORDER
     Dosage: 400 MG DAILY PO
     Route: 048
     Dates: start: 20010810
  12. SEROQUEL [Suspect]
     Indication: BIPOLAR DISORDER
     Dosage: 300 MG DAILY PO
     Route: 048
     Dates: start: 20010817
  13. SEROQUEL [Suspect]
     Indication: BIPOLAR DISORDER
     Dosage: 250 MG DAILY PO
     Route: 048
     Dates: start: 20010904
  14. SEROQUEL [Suspect]
     Indication: BIPOLAR DISORDER
     Dosage: 200 MG DAILY PO
     Route: 048
     Dates: start: 20010910
  15. SEROQUEL [Suspect]
     Indication: BIPOLAR DISORDER
     Dosage: 150 MG DAILY PO
     Route: 048
     Dates: start: 20010917
  16. SEROQUEL [Suspect]
     Indication: BIPOLAR DISORDER
     Dosage: 100 MG DAILY PO
     Route: 048
     Dates: start: 20010924
  17. SEROQUEL [Suspect]
     Indication: BIPOLAR DISORDER
     Dosage: 50 MG DAILY PO
     Route: 048
     Dates: start: 20011001, end: 20011008
  18. TEGRETOL [Suspect]
     Indication: MENTAL DISORDER
     Dates: start: 19870101
  19. TEGRETOL [Suspect]
     Indication: MENTAL DISORDER
     Dosage: 1200 MG DAILY
     Dates: start: 19990429
  20. TEGRETOL [Suspect]
     Indication: MENTAL DISORDER
     Dosage: 1400 MG DAILY
     Dates: start: 19990826
  21. TEGRETOL [Suspect]
     Indication: MENTAL DISORDER
     Dosage: 1600 MG DAILY
     Dates: start: 19991028
  22. TEGRETOL [Suspect]
     Indication: MENTAL DISORDER
     Dosage: 1800 MG DAILY
     Dates: start: 19991215
  23. TEGRETOL [Suspect]
     Indication: MENTAL DISORDER
     Dosage: 2000 MG DAILY
     Dates: start: 20010117, end: 20010524
  24. TEGRETOL [Suspect]
     Indication: MENTAL DISORDER
     Dosage: 2000 MG DAILY
     Dates: start: 20010527
  25. RISPERIDONE [Concomitant]
  26. HALDOL [Concomitant]
  27. LIBRIUM [Concomitant]
  28. BENTYL [Concomitant]
  29. BETHANECHOL [Concomitant]
  30. LITHIUM [Concomitant]
  31. NADOLOL [Concomitant]
  32. COLACE [Concomitant]
  33. PSYLLIUM [Concomitant]
  34. SYNTHROID [Concomitant]

REACTIONS (4)
  - ANTICONVULSANT DRUG LEVEL INCREASED [None]
  - DRUG INTERACTION [None]
  - DRUG TOXICITY [None]
  - LETHARGY [None]
